FAERS Safety Report 9901246 (Version 2)
Quarter: 2014Q1

REPORT INFORMATION
  Report Type: Spontaneous
  Country: US (occurrence: US)
  Receive Date: 20140217
  Receipt Date: 20140328
  Transmission Date: 20141002
  Serious: No
  Sender: FDA-Public Use
  Company Number: US-009507513-1402USA006749

PATIENT
  Age: 66 Year
  Sex: Female
  Weight: 112.2 kg

DRUGS (10)
  1. ZETIA [Suspect]
     Indication: LOW DENSITY LIPOPROTEIN INCREASED
     Dosage: ONE 10 MG TABLET DAILY
     Route: 048
     Dates: start: 20131205, end: 20140115
  2. ZETIA [Suspect]
     Dosage: 10 MG EVERY OTHER DAY OR 3 TIMES A WEEK
     Route: 048
     Dates: start: 201401
  3. ANASTROZOLE [Concomitant]
     Dosage: 1 MG DAILY
  4. CYCLOBENZAPRINE HYDROCHLORIDE [Concomitant]
     Dosage: 10 MG AS NEEDED
  5. LEVOTHYROXINE SODIUM [Concomitant]
     Dosage: 50 MG ONCE DAILY
     Route: 048
  6. PRINIVIL [Concomitant]
     Dosage: 10 MG, QD, ONCE DAILY
     Route: 048
  7. METFORMIN [Concomitant]
     Dosage: 1000 MG DAILY
  8. REGLAN [Concomitant]
     Dosage: 10 MG, QID, FOUR TIMES A DAY
  9. EFFEXOR [Concomitant]
     Dosage: 150 MG, QD
  10. GLYBURIDE [Concomitant]
     Dosage: 5 MG, BID, TWO TIMES A DAY

REACTIONS (4)
  - Arthralgia [Recovered/Resolved]
  - Arthralgia [Unknown]
  - Fatigue [Not Recovered/Not Resolved]
  - Inappropriate schedule of drug administration [Unknown]
